FAERS Safety Report 8471471-9 (Version None)
Quarter: 2012Q2

REPORT INFORMATION
  Report Type: 
  Country: None (occurrence: None)
  Receive Date: 20120627
  Receipt Date: 20120622
  Transmission Date: 20120825
  Serious: Yes (Hospitalization, Other)
  Sender: FDA-Public Use
  Company Number: PHHY2012NZ053146

PATIENT
  Sex: Female

DRUGS (4)
  1. ZOLEDRONOC ACID [Suspect]
     Dosage: UNK UKN, UNK
     Route: 042
     Dates: start: 20120307
  2. CHLORTHALIDONE [Concomitant]
     Dosage: 25 MG, QD
  3. VITAMINE D3 [Concomitant]
     Dosage: 1.25 MG, MONTHLY
  4. CANDESARTAN [Concomitant]
     Dosage: 16 MG, QD

REACTIONS (8)
  - MALAISE [None]
  - OBSTRUCTION [None]
  - HEADACHE [None]
  - GENERAL PHYSICAL HEALTH DETERIORATION [None]
  - HAEMOGLOBIN DECREASED [None]
  - FLUID RETENTION [None]
  - NAUSEA [None]
  - BACK PAIN [None]
